FAERS Safety Report 15353126 (Version 1)
Quarter: 2018Q3

REPORT INFORMATION
  Report Type: Spontaneous
  Country: US (occurrence: US)
  Receive Date: 20180905
  Receipt Date: 20180905
  Transmission Date: 20181010
  Serious: Yes (Other)
  Sender: FDA-Public Use
  Company Number: US-SAOL THERAPEUTICS-2018SAO00969

PATIENT
  Sex: Male

DRUGS (3)
  1. TYLENOL [Concomitant]
     Active Substance: ACETAMINOPHEN
     Dosage: UNK
     Dates: end: 201807
  2. ORAL BACLOFEN [Concomitant]
     Active Substance: BACLOFEN
     Dosage: LOW DOSE
     Route: 048
     Dates: end: 201806
  3. BACLOFEN. [Suspect]
     Active Substance: BACLOFEN
     Dosage: DOSE TITRATED TO EFFICACY
     Route: 037
     Dates: start: 201804

REACTIONS (1)
  - Hepatotoxicity [Not Recovered/Not Resolved]

NARRATIVE: CASE EVENT DATE: 201807
